FAERS Safety Report 25504193 (Version 3)
Quarter: 2025Q3

REPORT INFORMATION
  Report Type: Spontaneous
  Country: US (occurrence: US)
  Receive Date: 20250702
  Receipt Date: 20250715
  Transmission Date: 20251020
  Serious: Yes (Other)
  Sender: SUNOVION
  Company Number: US-SMPA-2025SPA008011

PATIENT

DRUGS (11)
  1. ORGOVYX [Suspect]
     Active Substance: RELUGOLIX
     Indication: Prostate cancer
     Route: 048
     Dates: start: 20250430, end: 20250430
  2. ORGOVYX [Suspect]
     Active Substance: RELUGOLIX
     Dosage: 120 MG, QD
     Route: 048
     Dates: start: 20250501
  3. ASPIRIN [Concomitant]
     Active Substance: ASPIRIN
     Indication: Vascular graft
     Dosage: 81 MG, QD
     Route: 065
  4. ASPIRIN [Concomitant]
     Active Substance: ASPIRIN
     Indication: Anticoagulant therapy
  5. ATORVASTATIN [Concomitant]
     Active Substance: ATORVASTATIN
     Indication: Myocardial infarction
     Dosage: 40 MG, QD
     Route: 065
  6. ATORVASTATIN [Concomitant]
     Active Substance: ATORVASTATIN
     Indication: Hypertension
  7. FUROSEMIDE [Concomitant]
     Active Substance: FUROSEMIDE
     Indication: Dysuria
     Dosage: 20 MG, 3 TIMES A WEEK
     Route: 065
  8. FUROSEMIDE [Concomitant]
     Active Substance: FUROSEMIDE
     Indication: Diarrhoea
  9. KEPPRA [Concomitant]
     Active Substance: LEVETIRACETAM
     Indication: Seizure
     Dosage: 500 MG, BID
     Route: 065
  10. KEPPRA [Concomitant]
     Active Substance: LEVETIRACETAM
     Indication: Cerebrovascular accident
  11. METOPROLOL SUCCINATE [Concomitant]
     Active Substance: METOPROLOL SUCCINATE
     Indication: Coronary artery disease
     Dosage: 150 MG, QD
     Route: 065

REACTIONS (2)
  - Cerebrovascular accident [Unknown]
  - Therapy interrupted [Unknown]
